FAERS Safety Report 8806595 (Version 2)
Quarter: 2012Q4

REPORT INFORMATION
  Report Type: 
  Country: US (occurrence: US)
  Receive Date: 20120925
  Receipt Date: 20121005
  Transmission Date: 20130627
  Serious: Yes (Hospitalization)
  Sender: FDA-Public Use
  Company Number: US-JNJFOC-20110408669

PATIENT
  Age: 23 Year
  Sex: Female
  Weight: 68.95 kg

DRUGS (3)
  1. BENADRYL ALLERGY [Suspect]
     Indication: SEASONAL ALLERGY
     Route: 048
     Dates: start: 20110418
  2. MULTIVITAMINS [Concomitant]
     Route: 048
  3. TRIMETHOPRIM [Concomitant]
     Indication: ACNE
     Route: 048

REACTIONS (3)
  - Heart rate increased [Recovering/Resolving]
  - Cold sweat [Recovering/Resolving]
  - Dizziness [Recovering/Resolving]
